FAERS Safety Report 6584601-0 (Version None)
Quarter: 2010Q1

REPORT INFORMATION
  Report Type: 
  Country: None (occurrence: None)
  Receive Date: 20100217
  Receipt Date: 20100208
  Transmission Date: 20100710
  Serious: Yes (Other)
  Sender: FDA-Public Use
  Company Number: ES-JNJFOC-20091000232

PATIENT
  Age: 45 Year
  Sex: Male

DRUGS (2)
  1. REMICADE [Suspect]
     Indication: COLITIS ULCERATIVE
     Dosage: RECEIVED 5 DOSES ON UNSPECIFIED DATES
     Route: 042
  2. AZATHIOPRINE [Concomitant]

REACTIONS (3)
  - ABSCESS NECK [None]
  - DIARRHOEA [None]
  - TUBERCULOSIS [None]
